FAERS Safety Report 8965751 (Version 1)
Quarter: 2012Q4

REPORT INFORMATION
  Report Type: Spontaneous
  Country: NL (occurrence: None)
  Receive Date: 20121206
  Receipt Date: 20121206
  Transmission Date: 20130627
  Serious: Yes (Hospitalization)
  Sender: FDA-Public Use
  Company Number: 2012ST000155

PATIENT
  Age: 67 Year
  Sex: Male

DRUGS (4)
  1. OMEPRAZOLE (OMEPRAZOLE) [Suspect]
     Indication: OESOPHAGEAL REFLUX
  2. CILAZAPRIL [Concomitant]
  3. METOPROLOL [Concomitant]
  4. ALLOPURINOL [Concomitant]

REACTIONS (3)
  - Hypocalcaemia [None]
  - Grand mal convulsion [None]
  - Hypomagnesaemia [None]
